FAERS Safety Report 20405904 (Version 4)
Quarter: 2022Q1

REPORT INFORMATION
  Report Type: Report from Study
  Country: FI (occurrence: FI)
  Receive Date: 20220131
  Receipt Date: 20220322
  Transmission Date: 20220423
  Serious: Yes (Hospitalization)
  Sender: FDA-Public Use
  Company Number: FI-SEATTLE GENETICS-2022SGN00475

PATIENT
  Age: 47 Year
  Sex: Female
  Weight: 72 kg

DRUGS (5)
  1. TISOTUMAB VEDOTIN [Suspect]
     Active Substance: TISOTUMAB VEDOTIN
     Indication: Cervix carcinoma recurrent
     Dosage: 2 MG/KG
     Route: 042
     Dates: start: 20220110
  2. AMITRIPTYLINE HYDROCHLORIDE [Concomitant]
     Active Substance: AMITRIPTYLINE HYDROCHLORIDE
     Indication: Nerve injury
     Dosage: 10 MG X 1
     Dates: start: 20210913
  3. CALCIUM CARBONATE\CHOLECALCIFEROL [Concomitant]
     Active Substance: CALCIUM CARBONATE\CHOLECALCIFEROL
     Indication: Prophylaxis
     Dosage: 500MG/10  X1
     Dates: start: 20200707
  4. PRIMPERAN [Concomitant]
     Active Substance: METOCLOPRAMIDE HYDROCHLORIDE
     Indication: Prophylaxis
     Dosage: 10 MG X 1-3
     Dates: start: 20210304
  5. ZOFRAN [Concomitant]
     Active Substance: ONDANSETRON HYDROCHLORIDE
     Indication: Prophylaxis
     Dosage: 8 MG X 1-2
     Dates: start: 20210304

REACTIONS (1)
  - Large intestinal obstruction [Recovering/Resolving]

NARRATIVE: CASE EVENT DATE: 20220126
